FAERS Safety Report 9065661 (Version 1)
Quarter: 2013Q1

REPORT INFORMATION
  Report Type: Spontaneous
  Country: US (occurrence: US)
  Receive Date: 20130131
  Receipt Date: 20130131
  Transmission Date: 20140127
  Serious: No
  Sender: FDA-Public Use
  Company Number: US-ABBOTT-12P-163-1017244-00

PATIENT
  Sex: Female

DRUGS (1)
  1. HUMIRA [Suspect]
     Indication: CROHN^S DISEASE
     Dates: start: 2011

REACTIONS (7)
  - Fistula [Unknown]
  - Abscess [Unknown]
  - Pain [Unknown]
  - Infection [Unknown]
  - Intestinal ulcer [Unknown]
  - Pain [Unknown]
  - Vaginal fistula [Unknown]
